FAERS Safety Report 7447210-7 (Version None)
Quarter: 2011Q2

REPORT INFORMATION
  Report Type: 
  Country: None (occurrence: None)
  Receive Date: 20110429
  Receipt Date: 20101213
  Transmission Date: 20111010
  Serious: No
  Sender: FDA-Public Use
  Company Number: US-ASTRAZENECA-2010SE58911

PATIENT
  Age: 37 Year
  Sex: Female

DRUGS (3)
  1. PROTONIX [Suspect]
     Route: 065
  2. NEXIUM [Suspect]
     Route: 048
  3. PRILOSEC [Suspect]
     Route: 048

REACTIONS (5)
  - ABDOMINAL PAIN UPPER [None]
  - APHAGIA [None]
  - DRUG INEFFECTIVE [None]
  - NAUSEA [None]
  - DRUG DOSE OMISSION [None]
